FAERS Safety Report 5519385-8 (Version None)
Quarter: 2007Q4

REPORT INFORMATION
  Report Type: 
  Country: None (occurrence: None)
  Receive Date: 20071114
  Receipt Date: 20071102
  Transmission Date: 20080405
  Serious: Yes (Hospitalization, Other)
  Sender: FDA-Public Use
  Company Number: 17711

PATIENT
  Age: 43 Year
  Sex: Male

DRUGS (7)
  1. CARBOPLATIN [Suspect]
     Indication: LEIOMYOSARCOMA
  2. DAUNORUBICIN [Suspect]
     Indication: LEIOMYOSARCOMA
  3. ALLOPURINOL [Suspect]
     Indication: HYPERURICAEMIA
  4. ALLOPURINOL [Suspect]
     Indication: PROPHYLAXIS
  5. HYDROXYCARBAMIDE [Suspect]
     Indication: ACUTE MYELOID LEUKAEMIA
  6. RASBURICASE [Suspect]
     Indication: OLIGURIA
  7. PARENTERAL [Concomitant]

REACTIONS (5)
  - ACUTE MYELOID LEUKAEMIA [None]
  - HAEMODIALYSIS [None]
  - RENAL FAILURE ACUTE [None]
  - RENAL TUBULAR DISORDER [None]
  - TUMOUR LYSIS SYNDROME [None]
